FAERS Safety Report 8910872 (Version 2)
Quarter: 2012Q4

REPORT INFORMATION
  Report Type: 
  Country: US (occurrence: US)
  Receive Date: 20121116
  Receipt Date: 20121211
  Transmission Date: 20130627
  Serious: Yes (Hospitalization)
  Sender: FDA-Public Use
  Company Number: US-SANOFI-AVENTIS-2012SA083068

PATIENT
  Age: 82 Year
  Sex: Male
  Weight: 97 kg

DRUGS (3)
  1. LANTUS SOLOSTAR [Suspect]
     Indication: TYPE II DIABETES MELLITUS
     Dosage: Dose:10 unit(s)
     Route: 058
  2. SOLOSTAR [Suspect]
     Indication: TYPE II DIABETES MELLITUS
  3. AMARYL [Suspect]
     Indication: TYPE II DIABETES MELLITUS
     Route: 048

REACTIONS (3)
  - Non-cardiac chest pain [Unknown]
  - Memory impairment [Unknown]
  - Blood glucose increased [Not Recovered/Not Resolved]
